FAERS Safety Report 5044037-0 (Version None)
Quarter: 2006Q2

REPORT INFORMATION
  Report Type: 
  Country: None (occurrence: None)
  Receive Date: 20060601
  Receipt Date: 20060327
  Transmission Date: 20061013
  Serious: No
  Sender: FDA-Public Use
  Company Number: US200603007321

PATIENT
  Sex: Female

DRUGS (6)
  1. CYMBALTA [Suspect]
  2. NEXIUM [Concomitant]
  3. NAPROSYN /NOR/ (NAPROXEN) [Concomitant]
  4. FLONASE [Concomitant]
  5. SYNTHROID [Concomitant]
  6. ALBUTEROL (SALBUMATOL) [Concomitant]

REACTIONS (1)
  - DEPRESSION [None]
